FAERS Safety Report 9606952 (Version 2)
Quarter: 2013Q4

REPORT INFORMATION
  Report Type: Report from Study
  Country: US (occurrence: US)
  Receive Date: 20131008
  Receipt Date: 20131008
  Transmission Date: 20140711
  Serious: Yes (Hospitalization)
  Sender: FDA-Public Use
  Company Number: US-ROCHE-1247471

PATIENT
  Age: 63 Year
  Sex: Female

DRUGS (3)
  1. PEGASYS [Suspect]
     Indication: CHRONIC HEPATITIS C
     Route: 058
     Dates: start: 20130623
  2. RIBASPHERE [Suspect]
     Indication: CHRONIC HEPATITIS C
     Route: 048
  3. BOCEPREVIR [Suspect]
     Indication: CHRONIC HEPATITIS C
     Route: 065

REACTIONS (13)
  - Full blood count decreased [Unknown]
  - Blood sodium decreased [Unknown]
  - Blood potassium decreased [Unknown]
  - Blood pressure diastolic decreased [Unknown]
  - Red blood cell count decreased [Unknown]
  - White blood cell count decreased [Unknown]
  - Platelet count decreased [Unknown]
  - Back pain [Unknown]
  - Dyspnoea [Unknown]
  - Pruritus [Unknown]
  - Rash [Unknown]
  - Nausea [Unknown]
  - Weight increased [Unknown]
